FAERS Safety Report 6695988-2 (Version None)
Quarter: 2010Q2

REPORT INFORMATION
  Report Type: 
  Country: None (occurrence: None)
  Receive Date: 20100423
  Receipt Date: 20100423
  Transmission Date: 20101027
  Serious: Yes (Hospitalization)
  Sender: FDA-Public Use
  Company Number: None

PATIENT
  Sex: Male
  Weight: 49.8 kg

DRUGS (2)
  1. LANTUS [Suspect]
     Dosage: 5 UNITS QHS SQ
     Route: 058
  2. NOVOLOG [Suspect]
     Dosage: 3 UNITS TID SQ
     Route: 058

REACTIONS (2)
  - HYPERGLYCAEMIA [None]
  - INAPPROPRIATE SCHEDULE OF DRUG ADMINISTRATION [None]
